FAERS Safety Report 7516605-5 (Version None)
Quarter: 2011Q2

REPORT INFORMATION
  Report Type: 
  Country: None (occurrence: None)
  Receive Date: 20110523
  Receipt Date: 20110511
  Transmission Date: 20111010
  Serious: Yes (Death)
  Sender: FDA-Public Use
  Company Number: JPI-P-014803

PATIENT
  Age: 71 Year
  Sex: Female

DRUGS (3)
  1. XYREM [Suspect]
     Indication: SLEEP DISORDER
     Dosage: 4.5 GM (2.25 GM, 2 IN 1 D), ORAL 6 GM (3 GM, 2 IN 1 D), ORAL 8 GM (4 GM, 2 IN 1 D), ORAL
     Route: 048
     Dates: start: 20040714, end: 20040805
  2. XYREM [Suspect]
     Indication: SLEEP DISORDER
     Dosage: 4.5 GM (2.25 GM, 2 IN 1 D), ORAL 6 GM (3 GM, 2 IN 1 D), ORAL 8 GM (4 GM, 2 IN 1 D), ORAL
     Route: 048
     Dates: start: 20040806, end: 20040829
  3. XYREM [Suspect]
     Indication: SLEEP DISORDER
     Dosage: 4.5 GM (2.25 GM, 2 IN 1 D), ORAL 6 GM (3 GM, 2 IN 1 D), ORAL 8 GM (4 GM, 2 IN 1 D), ORAL
     Route: 048
     Dates: start: 20040830, end: 20050126

REACTIONS (1)
  - DEATH [None]
